FAERS Safety Report 5193698-4 (Version None)
Quarter: 2006Q4

REPORT INFORMATION
  Report Type: 
  Country: None (occurrence: None)
  Receive Date: 20061228
  Receipt Date: 20061213
  Transmission Date: 20070319
  Serious: Yes (Other)
  Sender: FDA-Public Use
  Company Number: CA-ROCHE-474925

PATIENT
  Age: 65 Year
  Sex: Female

DRUGS (4)
  1. XENICAL [Suspect]
     Indication: WEIGHT CONTROL
     Route: 048
     Dates: start: 20060925
  2. XENICAL [Suspect]
     Route: 048
  3. ESOMEPRAZOLE MAGNESIUM [Concomitant]
     Dates: start: 19940615
  4. ZOCOR [Concomitant]
     Dates: start: 20040615

REACTIONS (1)
  - SPINAL HAEMANGIOMA [None]
